FAERS Safety Report 5951184-5 (Version None)
Quarter: 2008Q4

REPORT INFORMATION
  Report Type: 
  Country: None (occurrence: None)
  Receive Date: 20081112
  Receipt Date: 20081112
  Transmission Date: 20090506
  Serious: No
  Sender: FDA-Public Use
  Company Number: None

PATIENT
  Sex: Male
  Weight: 77.1115 kg

DRUGS (1)
  1. LARIAM [Suspect]
     Dosage: 250MG WEEKLY PO
     Route: 048
     Dates: start: 20021130, end: 20030512

REACTIONS (9)
  - ANXIETY [None]
  - BALANCE DISORDER [None]
  - BRONCHITIS [None]
  - HALLUCINATION, AUDITORY [None]
  - METABOLIC DISORDER [None]
  - OVERDOSE [None]
  - PANIC ATTACK [None]
  - PNEUMONITIS [None]
  - VESTIBULAR DISORDER [None]
